FAERS Safety Report 4285458-3 (Version None)
Quarter: 2004Q1

REPORT INFORMATION
  Report Type: 
  Country: None (occurrence: None)
  Receive Date: 20040202
  Receipt Date: 20040122
  Transmission Date: 20041129
  Serious: Yes (Hospitalization)
  Sender: FDA-Public Use
  Company Number: 2004195785CZ

PATIENT
  Age: 44 Year
  Sex: Male

DRUGS (4)
  1. GENOTROPIN [Suspect]
     Dosage: 0.8 IU, QD
     Dates: start: 20020228
  2. PREDNISONE [Concomitant]
  3. LEVOTHYROXINE SODIUM [Concomitant]
  4. TESTOSTERONE [Concomitant]

REACTIONS (1)
  - TINNITUS [None]
